FAERS Safety Report 19705002 (Version 1)
Quarter: 2021Q3

REPORT INFORMATION
  Report Type: Spontaneous
  Country: US (occurrence: US)
  Receive Date: 20210816
  Receipt Date: 20210816
  Transmission Date: 20211014
  Serious: No
  Sender: FDA-Public Use
  Company Number: None

PATIENT
  Age: 60 Year
  Sex: Female
  Weight: 50.85 kg

DRUGS (2)
  1. PREPARATION H SUPPOSITORY [Suspect]
     Active Substance: COCOA BUTTER\PHENYLEPHRINE HYDROCHLORIDE
     Indication: HAEMORRHOIDS
     Dosage: ?          QUANTITY:1 SUPPOSITORY(IES);?
     Route: 054
     Dates: start: 20210809, end: 20210809
  2. MULTI?VITAMIN FOR 50+ [Concomitant]

REACTIONS (2)
  - Insomnia [None]
  - Paraesthesia [None]

NARRATIVE: CASE EVENT DATE: 20210809
